FAERS Safety Report 5157010-9 (Version None)
Quarter: 2006Q4

REPORT INFORMATION
  Report Type: 
  Country: None (occurrence: None)
  Receive Date: 20061127
  Receipt Date: 20061117
  Transmission Date: 20070319
  Serious: Yes (Life-Threatening, Hospitalization, Disabling)
  Sender: FDA-Public Use
  Company Number: US-JNJFOC-20061104424

PATIENT
  Sex: Female

DRUGS (14)
  1. TYLENOL W/ CODEINE NO. 3 [Suspect]
     Indication: DRUG USE FOR UNKNOWN INDICATION
  2. ZOLPIDEM TARTRATE [Suspect]
     Indication: DRUG USE FOR UNKNOWN INDICATION
  3. LAMICTAL [Suspect]
     Indication: DRUG USE FOR UNKNOWN INDICATION
  4. CLONIDINE [Suspect]
     Indication: DRUG USE FOR UNKNOWN INDICATION
  5. ETHANOL [Suspect]
     Indication: DRUG USE FOR UNKNOWN INDICATION
  6. LORAZEPAM [Concomitant]
  7. WELLBUTRIN SR [Concomitant]
  8. REMERON [Concomitant]
  9. OMEPRAZOLE [Concomitant]
  10. HYDROCHLOROTHIAZIDE [Concomitant]
  11. VICODIN [Concomitant]
  12. ALBUTEROL [Concomitant]
  13. SIMVASTATIN [Concomitant]
  14. CHOLECALCIFEROL [Concomitant]

REACTIONS (3)
  - DYSPHAGIA [None]
  - INTENTIONAL OVERDOSE [None]
  - SUICIDE ATTEMPT [None]
